FAERS Safety Report 25059353 (Version 7)
Quarter: 2025Q2

REPORT INFORMATION
  Report Type: Spontaneous
  Country: JP (occurrence: JP)
  Receive Date: 20250310
  Receipt Date: 20250626
  Transmission Date: 20250716
  Serious: Yes (Hospitalization, Other)
  Sender: AMGEN
  Company Number: JP-AMGEN-JPNSP2024164984

PATIENT
  Age: 71 Year
  Sex: Male

DRUGS (5)
  1. BLINCYTO [Suspect]
     Active Substance: BLINATUMOMAB
     Indication: B precursor type acute leukaemia
     Route: 042
     Dates: start: 20240813, end: 202408
  2. BLINCYTO [Suspect]
     Active Substance: BLINATUMOMAB
     Route: 042
     Dates: start: 20240820, end: 20240909
  3. BLINCYTO [Suspect]
     Active Substance: BLINATUMOMAB
     Dosage: UNK, QD (USUAL DOSE FOR THE WEIGHT OF 45 KG OR MORE), DRIP INFUSION
     Route: 042
     Dates: start: 20240930
  4. BLINCYTO [Suspect]
     Active Substance: BLINATUMOMAB
     Route: 042
     Dates: start: 20250321
  5. ICLUSIG [Concomitant]
     Active Substance: PONATINIB HYDROCHLORIDE

REACTIONS (6)
  - Acute lymphocytic leukaemia recurrent [Recovering/Resolving]
  - Femur fracture [Recovered/Resolved]
  - Fall [Recovered/Resolved]
  - Cytokine release syndrome [Recovered/Resolved]
  - Arthralgia [Recovered/Resolved]
  - Off label use [Unknown]

NARRATIVE: CASE EVENT DATE: 20240930
